FAERS Safety Report 10241107 (Version 2)
Quarter: 2014Q3

REPORT INFORMATION
  Report Type: Spontaneous
  Country: GB (occurrence: GB)
  Receive Date: 20140617
  Receipt Date: 20140805
  Transmission Date: 20150326
  Serious: Yes (Other)
  Sender: FDA-Public Use
  Company Number: PHFR2014GB004265

PATIENT
  Age: 52 Year
  Sex: Male

DRUGS (2)
  1. CLOZARIL [Suspect]
     Active Substance: CLOZAPINE
     Indication: SCHIZOPHRENIA
     Dosage: 100 MG, DAILY
     Route: 048
     Dates: start: 20090730, end: 20140530
  2. CLOZARIL [Suspect]
     Active Substance: CLOZAPINE
     Indication: PSYCHOTIC DISORDER

REACTIONS (5)
  - Drug ineffective [Unknown]
  - Transient ischaemic attack [Recovered/Resolved]
  - White blood cell count increased [Unknown]
  - Neutrophil count increased [Unknown]
  - Cerebrovascular accident [Unknown]

NARRATIVE: CASE EVENT DATE: 20140530
